FAERS Safety Report 7861267-0 (Version None)
Quarter: 2011Q4

REPORT INFORMATION
  Report Type: 
  Country: None (occurrence: None)
  Receive Date: 20111027
  Receipt Date: 20111018
  Transmission Date: 20120403
  Serious: Yes (Other)
  Sender: FDA-Public Use
  Company Number: GB-JNJFOC-20111009892

PATIENT

DRUGS (1)
  1. HALOPERIDOL [Suspect]
     Indication: MENTAL DISABILITY
     Route: 065

REACTIONS (1)
  - TYPE 2 DIABETES MELLITUS [None]
